APPROVED DRUG PRODUCT: PINDOLOL
Active Ingredient: PINDOLOL
Strength: 5MG
Dosage Form/Route: TABLET;ORAL
Application: A074474 | Product #001
Applicant: NOSTRUM LABORATORIES INC
Approved: Oct 28, 1996 | RLD: No | RS: No | Type: DISCN